FAERS Safety Report 17672995 (Version 1)
Quarter: 2020Q2

REPORT INFORMATION
  Report Type: Other
  Country: US (occurrence: US)
  Receive Date: 20200415
  Receipt Date: 20200415
  Transmission Date: 20200713
  Serious: Yes (Other)
  Sender: FDA-Public Use
  Company Number: US-ALKERMES INC.-ALK-2019-006096

PATIENT
  Age: 23 Year
  Sex: Female
  Weight: 65.76 kg

DRUGS (2)
  1. VIVITROL [Suspect]
     Active Substance: NALTREXONE
     Indication: DRUG DEPENDENCE
     Dosage: 380 MG, QMO
     Route: 030
     Dates: end: 2019
  2. VIVITROL [Suspect]
     Active Substance: NALTREXONE
     Indication: MYALGIA
     Dosage: 380 MG, QMO
     Route: 030
     Dates: start: 20190702, end: 20190702

REACTIONS (7)
  - Off label use [Unknown]
  - Menstruation delayed [Unknown]
  - Intentional underdose [Unknown]
  - Product use in unapproved indication [Unknown]
  - Product administration error [Unknown]
  - Seizure [Unknown]
  - Myalgia [Unknown]

NARRATIVE: CASE EVENT DATE: 20190702
